FAERS Safety Report 10007910 (Version 1)
Quarter: 2014Q1

REPORT INFORMATION
  Report Type: Spontaneous
  Country: US (occurrence: US)
  Receive Date: 20140313
  Receipt Date: 20140313
  Transmission Date: 20141002
  Serious: No
  Sender: FDA-Public Use
  Company Number: US-GILEAD-2013-0070440

PATIENT
  Sex: Female

DRUGS (1)
  1. LETAIRIS [Suspect]
     Indication: PRODUCT USED FOR UNKNOWN INDICATION
     Dosage: 5 MG, QD
     Route: 048
     Dates: start: 20110413

REACTIONS (5)
  - Influenza [Unknown]
  - Nasopharyngitis [Unknown]
  - Bronchitis [Unknown]
  - Pulmonary contusion [Unknown]
  - Bedridden [Unknown]
